FAERS Safety Report 5068155-6 (Version None)
Quarter: 2006Q3

REPORT INFORMATION
  Report Type: 
  Country: None (occurrence: None)
  Receive Date: 20060731
  Receipt Date: 20060719
  Transmission Date: 20061208
  Serious: Yes (Other)
  Sender: FDA-Public Use
  Company Number: 227398

PATIENT
  Age: 22 Year
  Sex: Male

DRUGS (1)
  1. NUTROPIN AQ [Suspect]
     Indication: BODY HEIGHT BELOW NORMAL
     Dates: start: 19980101, end: 20020101

REACTIONS (2)
  - LIMB DEFORMITY [None]
  - SCOLIOSIS [None]
